FAERS Safety Report 23064717 (Version 3)
Quarter: 2023Q4

REPORT INFORMATION
  Report Type: Report from Study
  Country: TR (occurrence: None)
  Receive Date: 20231013
  Receipt Date: 20231116
  Transmission Date: 20240110
  Serious: Yes (Hospitalization)
  Sender: FDA-Public Use
  Company Number: TR-ROCHE-3434967

PATIENT
  Age: 37 Year
  Sex: Female
  Weight: 56.2 kg

DRUGS (14)
  1. PERTUZUMAB [Suspect]
     Active Substance: PERTUZUMAB
     Indication: HER2 positive breast cancer
     Dosage: DOSE LAST STUDY DRUG ADMIN PRIOR AE: 216 MG, DOSE LAST STUDY DRUG ADMIN PRIOR SAE: 420 MG?START DATE
     Route: 042
     Dates: start: 20230426
  2. TRASTUZUMAB [Suspect]
     Active Substance: TRASTUZUMAB
     Indication: HER2 positive breast cancer
     Dosage: DOSE LAST STUDY DRUG ADMIN PRIOR AE + SAE: 420 MG, START DATE OF MOST RECENT DOSE OF STUDY DRUG?PRIO
     Route: 041
     Dates: start: 20230426
  3. DOCETAXEL [Suspect]
     Active Substance: DOCETAXEL\DOCETAXEL ANHYDROUS
     Indication: HER2 positive breast cancer
     Dosage: DOSE LAST STUDY DRUG ADMIN PRIOR AE + SAE: 99.6 MG, START DATE OF MOST RECENT DOSE OF STUDY DRUG?PRI
     Route: 042
     Dates: start: 20230426
  4. DOXORUBICIN [Suspect]
     Active Substance: DOXORUBICIN
     Indication: HER2 positive breast cancer
     Route: 065
     Dates: start: 20230228
  5. CYCLOPHOSPHAMIDE [Suspect]
     Active Substance: CYCLOPHOSPHAMIDE
     Indication: HER2 positive breast cancer
     Route: 065
     Dates: start: 20230228
  6. AXEPARIN [Concomitant]
     Route: 048
     Dates: start: 20231003, end: 20231003
  7. BITERAL [Concomitant]
     Route: 042
     Dates: start: 20231003, end: 20231003
  8. DEVASID [Concomitant]
     Route: 048
     Dates: start: 20231003, end: 20231003
  9. KETAX [Concomitant]
     Route: 042
     Dates: start: 20231003, end: 20231003
  10. NACOSEL [Concomitant]
     Route: 042
     Dates: start: 20231003, end: 20231003
  11. OPIVA [Concomitant]
     Route: 042
     Dates: start: 20231003, end: 20231003
  12. PARACEROL [Concomitant]
     Route: 042
     Dates: start: 20231003, end: 20231003
  13. PETHOLAN [Concomitant]
     Route: 042
     Dates: start: 20231003, end: 20231003
  14. PANTOPRAZOLE SODIUM [Concomitant]
     Active Substance: PANTOPRAZOLE SODIUM
     Route: 042
     Dates: start: 20231003, end: 20231003

REACTIONS (1)
  - Wound dehiscence [Recovering/Resolving]

NARRATIVE: CASE EVENT DATE: 20230831
